FAERS Safety Report 4336540-3 (Version None)
Quarter: 2004Q2

REPORT INFORMATION
  Report Type: 
  Country: None (occurrence: None)
  Receive Date: 20040412
  Receipt Date: 20040331
  Transmission Date: 20050107
  Serious: Yes (Hospitalization)
  Sender: FDA-Public Use
  Company Number: FR-BRISTOL-MYERS SQUIBB COMPANY-12547139

PATIENT
  Age: 52 Year
  Sex: Female

DRUGS (10)
  1. FUNGIZONE [Suspect]
     Route: 048
     Dates: start: 20040210, end: 20040310
  2. ALDACTONE [Suspect]
     Route: 048
     Dates: start: 20040120, end: 20040310
  3. PREDNISONE [Suspect]
     Route: 048
     Dates: start: 20040130, end: 20040310
  4. LASIX [Suspect]
     Route: 048
     Dates: start: 20040120, end: 20040310
  5. OMEPRAZOLE [Suspect]
     Route: 048
     Dates: start: 20040124, end: 20040310
  6. NOROXIN [Suspect]
     Route: 048
     Dates: start: 20040124, end: 20040310
  7. VITAMIN C [Concomitant]
  8. CACIT D3 [Concomitant]
     Route: 048
     Dates: start: 20040130, end: 20040310
  9. ZOLPIDEM TARTRATE [Concomitant]
     Dosage: 1/2 TABLET DAILY
     Route: 048
     Dates: start: 20040130, end: 20040310
  10. SPECIAFOLDINE [Concomitant]
     Route: 048
     Dates: start: 20040215, end: 20040310

REACTIONS (1)
  - AGRANULOCYTOSIS [None]
